FAERS Safety Report 10707470 (Version 4)
Quarter: 2017Q1

REPORT INFORMATION
  Report Type: Spontaneous
  Country: US (occurrence: US)
  Receive Date: 20150113
  Receipt Date: 20170210
  Transmission Date: 20170428
  Serious: Yes (Hospitalization, Disabling, Other)
  Sender: FDA-Public Use
  Company Number: US-009507513-1205USA05029

PATIENT
  Sex: Male
  Weight: 75.28 kg

DRUGS (2)
  1. PROPECIA [Suspect]
     Active Substance: FINASTERIDE
     Indication: ANDROGENETIC ALOPECIA
     Dosage: 1 MG, QD
     Route: 048
     Dates: start: 19980505, end: 2011
  2. FINASTERIDE. [Suspect]
     Active Substance: FINASTERIDE
     Indication: ANDROGENETIC ALOPECIA
     Dosage: 1 MG, UNK
     Route: 048
     Dates: start: 19990830, end: 2011

REACTIONS (38)
  - Suicidal ideation [Unknown]
  - Erectile dysfunction [Not Recovered/Not Resolved]
  - Insomnia [Not Recovered/Not Resolved]
  - Vision blurred [Unknown]
  - Asthenia [Unknown]
  - Scleroderma [Unknown]
  - Loss of libido [Unknown]
  - Exercise tolerance decreased [Unknown]
  - Weight decreased [Unknown]
  - Pain [Not Recovered/Not Resolved]
  - Sexual dysfunction [Not Recovered/Not Resolved]
  - Libido decreased [Not Recovered/Not Resolved]
  - Sinus congestion [Unknown]
  - Vitreous floaters [Unknown]
  - Dry skin [Unknown]
  - Rhinoplasty [Unknown]
  - Rhinoplasty [Unknown]
  - Ejaculation failure [Not Recovered/Not Resolved]
  - Rhinoplasty [Unknown]
  - Immunology test abnormal [Unknown]
  - Chlamydial infection [Unknown]
  - Depression [Unknown]
  - Premature ejaculation [Unknown]
  - Dizziness [Unknown]
  - Cognitive disorder [Not Recovered/Not Resolved]
  - Depression [Not Recovered/Not Resolved]
  - Foot fracture [Unknown]
  - Constipation [Unknown]
  - Peripheral coldness [Unknown]
  - Sexual dysfunction [Not Recovered/Not Resolved]
  - Suspiciousness [Unknown]
  - Body temperature decreased [Unknown]
  - Anxiety [Not Recovered/Not Resolved]
  - Rhinoplasty [Unknown]
  - Ejaculation disorder [Not Recovered/Not Resolved]
  - Panic attack [Recovered/Resolved]
  - Chondroplasty [Unknown]
  - Local swelling [Unknown]

NARRATIVE: CASE EVENT DATE: 19990830
